FAERS Safety Report 11274330 (Version 1)
Quarter: 2015Q3

REPORT INFORMATION
  Report Type: Report from Study
  Country: US (occurrence: US)
  Receive Date: 20150715
  Receipt Date: 20150715
  Transmission Date: 20151125
  Serious: Yes (Hospitalization, Other)
  Sender: FDA-Public Use
  Company Number: US-MYLANLABS-2013SP006457

PATIENT
  Age: 63 Year
  Sex: Male

DRUGS (11)
  1. FLUOROURACIL. [Suspect]
     Active Substance: FLUOROURACIL
     Route: 042
     Dates: start: 20130806
  2. BEVACIZUMAB [Suspect]
     Active Substance: BEVACIZUMAB
     Dosage: 346 MG, CYCLE
     Route: 042
     Dates: start: 20130806
  3. IRINOTECAN [Suspect]
     Active Substance: IRINOTECAN
     Indication: COLON CANCER
     Dosage: 307 MG, CYCLE
     Route: 042
     Dates: start: 20130626
  4. FLUOROURACIL. [Suspect]
     Active Substance: FLUOROURACIL
     Route: 042
     Dates: start: 20130626
  5. IRINOTECAN [Suspect]
     Active Substance: IRINOTECAN
     Dosage: 307 MG, CYCLE
     Route: 042
     Dates: start: 20130806
  6. CALCIUM FOLINATE [Suspect]
     Active Substance: LEUCOVORIN CALCIUM
     Dosage: 372 MG, CYCLE
     Route: 042
     Dates: start: 20130806
  7. BEVACIZUMAB [Suspect]
     Active Substance: BEVACIZUMAB
     Indication: COLON CANCER
     Dosage: 346 MG, CYCLE
     Route: 042
     Dates: start: 20130626, end: 20130730
  8. OXALIPLATIN. [Suspect]
     Active Substance: OXALIPLATIN
     Indication: COLON CANCER
     Route: 042
     Dates: start: 20130626, end: 20130730
  9. FLUOROURACIL. [Suspect]
     Active Substance: FLUOROURACIL
     Indication: COLON CANCER
  10. OXALIPLATIN. [Suspect]
     Active Substance: OXALIPLATIN
     Route: 042
     Dates: start: 20130806
  11. CALCIUM FOLINATE [Suspect]
     Active Substance: LEUCOVORIN CALCIUM
     Indication: COLON CANCER
     Route: 042
     Dates: start: 20130626

REACTIONS (3)
  - Rectal perforation [Recovered/Resolved with Sequelae]
  - Proctalgia [Recovered/Resolved with Sequelae]
  - Rectal abscess [Recovered/Resolved with Sequelae]

NARRATIVE: CASE EVENT DATE: 20130823
